FAERS Safety Report 4734444-5 (Version None)
Quarter: 2005Q3

REPORT INFORMATION
  Report Type: 
  Country: None (occurrence: None)
  Receive Date: 20050804
  Receipt Date: 20050729
  Transmission Date: 20060218
  Serious: Yes (Other)
  Sender: FDA-Public Use
  Company Number: RO-ROCHE-412328

PATIENT
  Sex: Female

DRUGS (2)
  1. PEGASYS [Suspect]
     Dosage: FORMULATION: PRE-FILLED SYRINGE.
     Route: 058
     Dates: start: 20050115
  2. COPEGUS [Concomitant]
     Dosage: PATIENT WAS STARTED ON 800 MG DAILY AND DOSE WAS REDUCED DUE TO ANAEMIA IN JUN 2005 TO 600 MG DAILY.
     Route: 048
     Dates: start: 20050115

REACTIONS (2)
  - ANAEMIA [None]
  - THYROIDITIS [None]
